FAERS Safety Report 16425170 (Version 4)
Quarter: 2021Q4

REPORT INFORMATION
  Report Type: Report from Study
  Country: DE (occurrence: DE)
  Receive Date: 20190613
  Receipt Date: 20211223
  Transmission Date: 20220304
  Serious: Yes (Hospitalization, Other)
  Sender: FDA-Public Use
  Company Number: DE-BRISTOL-MYERS SQUIBB COMPANY-BMS-2019-055103

PATIENT
  Age: 52 Year
  Sex: Female

DRUGS (8)
  1. NIVOLUMAB [Suspect]
     Active Substance: NIVOLUMAB
     Indication: Malignant melanoma
     Dosage: 65 MILLIGRAM
     Route: 065
     Dates: start: 20171128
  2. NIVOLUMAB [Suspect]
     Active Substance: NIVOLUMAB
     Dosage: 480 MILLIGRAM, Q4WK
     Route: 042
     Dates: start: 20180214
  3. NIVOLUMAB [Suspect]
     Active Substance: NIVOLUMAB
     Dosage: 480 MILLIGRAM
     Route: 065
     Dates: start: 20180608, end: 20180803
  4. NIVOLUMAB [Suspect]
     Active Substance: NIVOLUMAB
     Dosage: 60 MILLIGRAM
     Route: 065
     Dates: start: 20171230, end: 20180131
  5. NIVOLUMAB [Suspect]
     Active Substance: NIVOLUMAB
     Dosage: 177 MILLIGRAM
     Route: 065
     Dates: start: 20180311, end: 20180329
  6. NIVOLUMAB [Suspect]
     Active Substance: NIVOLUMAB
     Dosage: 180 MILLIGRAM
     Route: 065
     Dates: start: 20180214
  7. IPILIMUMAB [Suspect]
     Active Substance: IPILIMUMAB
     Indication: Malignant melanoma
     Dosage: 195 (UNSPECIFIED UNITS) Q3WK
     Route: 065
     Dates: start: 20171128, end: 20180131
  8. IPILIMUMAB [Suspect]
     Active Substance: IPILIMUMAB
     Dosage: 180 MILLIGRAM
     Route: 065
     Dates: start: 20171230, end: 20180111

REACTIONS (1)
  - Myelitis [Recovering/Resolving]

NARRATIVE: CASE EVENT DATE: 20190313
